FAERS Safety Report 8054965-X (Version None)
Quarter: 2012Q1

REPORT INFORMATION
  Report Type: 
  Country: None (occurrence: None)
  Receive Date: 20120119
  Receipt Date: 20120113
  Transmission Date: 20120608
  Serious: Yes (Life-Threatening)
  Sender: FDA-Public Use
  Company Number: FR-PFIZER INC-2012010109

PATIENT
  Age: 60 Year
  Sex: Male

DRUGS (6)
  1. CLINDAMYCIN [Suspect]
     Indication: NASAL SEPTAL OPERATION
     Dosage: UNK
     Route: 042
     Dates: start: 20100906
  2. KETAMINE [Suspect]
     Indication: NASAL SEPTAL OPERATION
     Dosage: UNK
     Route: 042
     Dates: start: 20100906
  3. SOLU-MEDROL [Suspect]
     Indication: NASAL SEPTAL OPERATION
     Dosage: UNK
     Route: 042
     Dates: start: 20100906
  4. ROCURONIUM BROMIDE [Suspect]
     Indication: NASAL SEPTAL OPERATION
     Dosage: UNK
     Route: 042
     Dates: start: 20100906
  5. SUFENTA PRESERVATIVE FREE [Suspect]
     Indication: NASAL SEPTAL OPERATION
     Dosage: UNK
     Route: 042
     Dates: start: 20100906
  6. DIPRIVAN [Suspect]
     Indication: NASAL SEPTAL OPERATION
     Dosage: UNK
     Route: 042
     Dates: start: 20100906

REACTIONS (2)
  - SKIN TEST NEGATIVE [None]
  - ANAPHYLACTIC SHOCK [None]
